FAERS Safety Report 7324655-7 (Version None)
Quarter: 2011Q1

REPORT INFORMATION
  Report Type: 
  Country: None (occurrence: None)
  Receive Date: 20110301
  Receipt Date: 20110223
  Transmission Date: 20110831
  Serious: Yes (Death)
  Sender: FDA-Public Use
  Company Number: PHHY2011AU14985

PATIENT

DRUGS (4)
  1. CLOZAPINE [Suspect]
     Indication: SCHIZOPHRENIA
     Dosage: 100 MG, DAILY
  2. BENZTROPINE MESYLATE [Concomitant]
  3. LITHIUM CARBONATE [Concomitant]
  4. CLONAZEPAM [Concomitant]

REACTIONS (4)
  - PNEUMONIA [None]
  - MYOCARDITIS [None]
  - CORONARY ARTERY STENOSIS [None]
  - INFLUENZA LIKE ILLNESS [None]
